FAERS Safety Report 22170738 (Version 1)
Quarter: 2023Q2

REPORT INFORMATION
  Report Type: Spontaneous
  Country: DE (occurrence: DE)
  Receive Date: 20230404
  Receipt Date: 20230404
  Transmission Date: 20230722
  Serious: Yes (Other)
  Sender: FDA-Public Use
  Company Number: DE-EMBRYOTOX-202201727

PATIENT
  Age: 1 Day
  Sex: Female
  Weight: 2.51 kg

DRUGS (2)
  1. LAMOTRIGINE [Suspect]
     Active Substance: LAMOTRIGINE
     Indication: Foetal exposure during pregnancy
     Dosage: MATERNAL DOSE: 350 [MG/D ]/ INITIAL 100-0-100MG DAILY, INCREASED FROM WEEK 19 TO 175-0-175MG DAILY
     Route: 064
     Dates: start: 20211119, end: 20220819
  2. OXYTOCIN [Concomitant]
     Active Substance: OXYTOCIN
     Indication: Foetal exposure during pregnancy
     Dosage: UNK
     Route: 064

REACTIONS (2)
  - Small for dates baby [Unknown]
  - Foetal exposure during pregnancy [Unknown]

NARRATIVE: CASE EVENT DATE: 20220801
